FAERS Safety Report 5017134-3 (Version None)
Quarter: 2006Q2

REPORT INFORMATION
  Report Type: 
  Country: None (occurrence: None)
  Receive Date: 20060525
  Receipt Date: 20060515
  Transmission Date: 20061013
  Serious: Yes (Other)
  Sender: FDA-Public Use
  Company Number: CLOF-10237

PATIENT
  Age: 72 Year
  Sex: Female

DRUGS (5)
  1. CLOFARABINE [Suspect]
     Indication: ACUTE LYMPHOCYTIC LEUKAEMIA
     Dosage: 40 MG/M2 QD X 3 IV
     Route: 042
     Dates: start: 20060428, end: 20060430
  2. CYCLOPHOSPHAMIDE [Suspect]
     Indication: ACUTE LYMPHOCYTIC LEUKAEMIA
     Dosage: 300 MG/M2 Q12HR IV
     Route: 042
     Dates: start: 20060427, end: 20060101
  3. LEVOTHYROXINE SODIUM [Concomitant]
  4. MAGNESIUM [Concomitant]
  5. PIPERACILLIN [Concomitant]

REACTIONS (2)
  - BLOOD CREATININE INCREASED [None]
  - RECTAL HAEMORRHAGE [None]
